FAERS Safety Report 25754917 (Version 1)
Quarter: 2025Q3

REPORT INFORMATION
  Report Type: Spontaneous
  Country: IL (occurrence: IL)
  Receive Date: 20250903
  Receipt Date: 20250903
  Transmission Date: 20251020
  Serious: Yes (Hospitalization, Other)
  Sender: RANBAXY
  Company Number: IL-SUN PHARMACEUTICAL INDUSTRIES LTD-2025R1-524290

PATIENT
  Age: 62 Year
  Sex: Male

DRUGS (1)
  1. CARBAMAZEPINE [Suspect]
     Active Substance: CARBAMAZEPINE
     Indication: Product used for unknown indication
     Dosage: 2 TABLETS, TID
     Route: 065

REACTIONS (4)
  - Dizziness [Unknown]
  - Head discomfort [Unknown]
  - Fall [Unknown]
  - Dizziness postural [Unknown]

NARRATIVE: CASE EVENT DATE: 20250811
